FAERS Safety Report 7597673-1 (Version None)
Quarter: 2011Q3

REPORT INFORMATION
  Report Type: 
  Country: None (occurrence: None)
  Receive Date: 20110708
  Receipt Date: 20110707
  Transmission Date: 20111222
  Serious: Yes (Hospitalization)
  Sender: FDA-Public Use
  Company Number: US-GLAXOSMITHKLINE-A0796455A

PATIENT
  Age: 55 Year
  Sex: Female
  Weight: 119.1 kg

DRUGS (4)
  1. GLYBURIDE [Concomitant]
  2. AVANDIA [Suspect]
     Indication: DIABETES MELLITUS
     Dosage: 4MG PER DAY
     Route: 048
     Dates: start: 20000901, end: 20060701
  3. FERROUS SULFATE TAB [Concomitant]
  4. VASOTEC [Concomitant]

REACTIONS (5)
  - CEREBROVASCULAR ACCIDENT [None]
  - THROMBOSIS [None]
  - TRANSIENT ISCHAEMIC ATTACK [None]
  - MYOCARDIAL INFARCTION [None]
  - CARDIOVASCULAR DISORDER [None]
